FAERS Safety Report 5103062-1 (Version None)
Quarter: 2006Q3

REPORT INFORMATION
  Report Type: 
  Country: None (occurrence: None)
  Receive Date: 20060907
  Receipt Date: 20060823
  Transmission Date: 20061208
  Serious: Yes (Hospitalization)
  Sender: FDA-Public Use
  Company Number: S06-GER-02593-01

PATIENT
  Age: 78 Year
  Sex: Female
  Weight: 77.4 kg

DRUGS (16)
  1. CITALOPRAM HYDROBROMIDE [Suspect]
     Indication: DEPRESSION
     Dosage: 60 MG QD PO
     Route: 048
  2. CITALOPRAM HYDROBROMIDE [Suspect]
     Indication: DEPRESSION
  3. CITALOPRAM HYDROBROMIDE [Suspect]
     Indication: DEPRESSION
  4. FUROSEMIDE [Suspect]
     Dosage: 125 MG QD PO
     Route: 048
  5. ZOPICLON (ZOPICLONE) [Concomitant]
  6. BAYMYCARD (NISOLDIPINE) [Concomitant]
  7. ATACAND [Concomitant]
  8. ISOSORBIDE DINITRATE [Concomitant]
  9. ASPIRIN [Concomitant]
  10. NEXIUM [Concomitant]
  11. MAGNESIOCARD (MAGNESIUM ASPARTATE HYDROCHLORIDE) [Concomitant]
  12. FERRANIN COMPLEX [Concomitant]
  13. PYRIDOXIN (PYRIDOXINE HYDROCHLORIDE) (PYRIDOXIN) [Concomitant]
  14. FOLIC ACID [Concomitant]
  15. CYANOCOBALMIN (CYANOCOBALAMIN) [Concomitant]
  16. EFFORTIL (ETILEFRINE HYDROCHLORIDE) [Concomitant]

REACTIONS (39)
  - ABDOMINAL PAIN UPPER [None]
  - AORTIC ARTERIOSCLEROSIS [None]
  - ASPARTATE AMINOTRANSFERASE INCREASED [None]
  - ASTHENIA [None]
  - BLOOD CHOLINESTERASE ABNORMAL [None]
  - BLOOD CREATINE PHOSPHOKINASE INCREASED [None]
  - BLOOD CREATININE INCREASED [None]
  - BLOOD GLUCOSE INCREASED [None]
  - BLOOD LACTATE DEHYDROGENASE INCREASED [None]
  - BLOOD UREA INCREASED [None]
  - BLOOD URIC ACID INCREASED [None]
  - BRADYCARDIA [None]
  - CHEST INJURY [None]
  - CHEST X-RAY ABNORMAL [None]
  - CHOLELITHIASIS [None]
  - CONSTIPATION [None]
  - CREATININE RENAL CLEARANCE DECREASED [None]
  - DEHYDRATION [None]
  - DIVERTICULUM [None]
  - DIZZINESS [None]
  - ELECTROCARDIOGRAM ABNORMAL [None]
  - FALL [None]
  - GENERAL PHYSICAL HEALTH DETERIORATION [None]
  - HEAD INJURY [None]
  - HYPONATRAEMIA [None]
  - HYPOTENSION [None]
  - INTERVERTEBRAL DISC DEGENERATION [None]
  - IRON DEFICIENCY [None]
  - NAUSEA [None]
  - NORMOCHROMIC NORMOCYTIC ANAEMIA [None]
  - PEDAL PULSE ABNORMAL [None]
  - RED BLOOD CELL COUNT DECREASED [None]
  - RETICULOCYTE COUNT INCREASED [None]
  - RIB FRACTURE [None]
  - SIMILAR REACTION ON PREVIOUS EXPOSURE TO DRUG [None]
  - SLEEP APNOEA SYNDROME [None]
  - SLEEP STUDY ABNORMAL [None]
  - SNORING [None]
  - TACHYCARDIA [None]
